FAERS Safety Report 6470432-9 (Version None)
Quarter: 2009Q4

REPORT INFORMATION
  Report Type: 
  Country: None (occurrence: None)
  Receive Date: 20091203
  Receipt Date: 20081126
  Transmission Date: 20100525
  Serious: No
  Sender: FDA-Public Use
  Company Number: US-AMGEN-KDL321073

PATIENT
  Sex: Female

DRUGS (2)
  1. ENBREL [Suspect]
     Indication: RHEUMATOID ARTHRITIS
     Route: 058
  2. LYRICA [Concomitant]

REACTIONS (10)
  - ABDOMINAL DISTENSION [None]
  - BACK INJURY [None]
  - BACK PAIN [None]
  - FALL [None]
  - MUSCLE ATROPHY [None]
  - MUSCLE TIGHTNESS [None]
  - NECK INJURY [None]
  - NECK PAIN [None]
  - SWELLING [None]
  - WEIGHT INCREASED [None]
